FAERS Safety Report 9535938 (Version 1)
Quarter: 2013Q2

REPORT INFORMATION
  Report Type: Spontaneous
  Country: US (occurrence: None)
  Receive Date: 20130507
  Receipt Date: 20130507
  Transmission Date: 20140414
  Serious: Yes (Hospitalization, Other)
  Sender: FDA-Public Use
  Company Number: PHEH2013US002373

PATIENT
  Age: 30 Year
  Sex: Male

DRUGS (9)
  1. AFINITOR (RAD) UNKNOWN [Suspect]
     Indication: TUBEROUS SCLEROSIS
     Route: 048
     Dates: start: 20121221
  2. NORVASC (AMLODIPINE BESILATE) [Concomitant]
  3. BUSPAR (BUSPIRONE HYDROCHLORIDE) [Concomitant]
  4. VITAMIN B12 (CYANOCOBALAMIN) [Concomitant]
  5. FOLIC ACID (FOLIC ACID) [Concomitant]
  6. GEODON (ZIPRASIDONE HYDROCHLORIDE) [Concomitant]
  7. LITHIUM (LITHIUM) [Concomitant]
  8. L-LYSINE (LYSINE) [Concomitant]
  9. COREG (CARVEDILOL) [Concomitant]

REACTIONS (15)
  - Renal failure [None]
  - Pneumonia [None]
  - Ear pain [None]
  - Red blood cell count abnormal [None]
  - Eating disorder [None]
  - Hypersomnia [None]
  - Peripheral coldness [None]
  - Yellow skin [None]
  - Pain in jaw [None]
  - Rash [None]
  - Stomatitis [None]
  - Rash pruritic [None]
  - Asthenia [None]
  - Weight decreased [None]
  - Otitis externa [None]
